FAERS Safety Report 10807192 (Version 1)
Quarter: 2015Q1

REPORT INFORMATION
  Report Type: Report from Study
  Country: US (occurrence: US)
  Receive Date: 20150217
  Receipt Date: 20150217
  Transmission Date: 20150721
  Serious: No
  Sender: FDA-Public Use
  Company Number: US-ABBVIE-14K-163-1256444-00

PATIENT
  Age: 80 Year
  Sex: Female

DRUGS (6)
  1. HUMIRA [Suspect]
     Active Substance: ADALIMUMAB
     Indication: PSORIATIC ARTHROPATHY
     Dates: start: 20140513, end: 20140513
  2. ALEVE [Concomitant]
     Active Substance: NAPROXEN SODIUM
     Indication: PAIN
     Dosage: OVER THE COUNTER
  3. HUMIRA [Suspect]
     Active Substance: ADALIMUMAB
  4. UNKNOWN MEDICATION [Concomitant]
     Active Substance: UNSPECIFIED INGREDIENT
     Indication: HYPERTENSION
  5. HUMIRA [Suspect]
     Active Substance: ADALIMUMAB
     Indication: PSORIASIS
     Dates: start: 20140506, end: 20140506
  6. UNKNOWN MEDICATION [Concomitant]
     Active Substance: UNSPECIFIED INGREDIENT
     Indication: HYPOTHYROIDISM

REACTIONS (10)
  - Joint swelling [Not Recovered/Not Resolved]
  - Rhinorrhoea [Unknown]
  - Wrong technique in drug usage process [Unknown]
  - Drug dose omission [Not Recovered/Not Resolved]
  - Pain in extremity [Recovering/Resolving]
  - Pain [Recovering/Resolving]
  - Paranasal sinus discomfort [Unknown]
  - Sinus disorder [Unknown]
  - Sneezing [Unknown]
  - Cough [Unknown]

NARRATIVE: CASE EVENT DATE: 201406
